FAERS Safety Report 4390172-X (Version None)
Quarter: 2004Q3

REPORT INFORMATION
  Report Type: 
  Country: None (occurrence: None)
  Receive Date: 20040706
  Receipt Date: 20040607
  Transmission Date: 20050211
  Serious: Yes (Hospitalization)
  Sender: FDA-Public Use
  Company Number: FR-GLAXOSMITHKLINE-B0334954A

PATIENT
  Age: 92 Year
  Sex: Female

DRUGS (4)
  1. DEROXAT [Suspect]
     Dosage: 10MG PER DAY
     Route: 048
     Dates: start: 20030625, end: 20030702
  2. REMINYL [Suspect]
     Dosage: 1UNIT TWICE PER DAY
     Route: 048
  3. PHYSIOTENS [Suspect]
     Dosage: .2MG PER DAY
     Route: 048
     Dates: start: 20030624
  4. IMOVANE [Concomitant]
     Indication: ILL-DEFINED DISORDER
     Dosage: 7.5MG PER DAY
     Route: 048
     Dates: start: 20040501

REACTIONS (3)
  - HYPONATRAEMIA [None]
  - MALAISE [None]
  - ORTHOSTATIC HYPOTENSION [None]
